FAERS Safety Report 5055515-2 (Version None)
Quarter: 2006Q3

REPORT INFORMATION
  Report Type: 
  Country: None (occurrence: None)
  Receive Date: 20060719
  Receipt Date: 20051026
  Transmission Date: 20061208
  Serious: Yes (Hospitalization)
  Sender: FDA-Public Use
  Company Number: CH-MERCK-0510USA09249

PATIENT
  Age: 20 Year
  Sex: Female

DRUGS (1)
  1. STROMECTOL [Suspect]
     Indication: FILARIASIS
     Route: 048

REACTIONS (4)
  - ABDOMINAL PAIN [None]
  - DRUG INEFFECTIVE [None]
  - HEPATITIS [None]
  - HEPATOTOXICITY [None]
